FAERS Safety Report 24578698 (Version 7)
Quarter: 2025Q3

REPORT INFORMATION
  Report Type: Report from Study
  Country: KR (occurrence: KR)
  Receive Date: 20241105
  Receipt Date: 20250930
  Transmission Date: 20251021
  Serious: Yes (Hospitalization)
  Sender: ABBVIE
  Company Number: KR-ABBVIE-5985355

PATIENT
  Age: 51 Year
  Sex: Female
  Weight: 74 kg

DRUGS (25)
  1. RINVOQ [Suspect]
     Active Substance: UPADACITINIB
     Indication: Colitis ulcerative
     Route: 048
     Dates: start: 20240906, end: 20241017
  2. RINVOQ [Suspect]
     Active Substance: UPADACITINIB
     Indication: Colitis ulcerative
     Route: 048
     Dates: start: 20241029, end: 20241201
  3. RINVOQ [Suspect]
     Active Substance: UPADACITINIB
     Indication: Colitis ulcerative
     Route: 048
     Dates: start: 20241202
  4. Bukwang Midazolam [Concomitant]
     Indication: Colonoscopy
     Route: 042
     Dates: start: 20241017, end: 20241017
  5. Bukwang Midazolam [Concomitant]
     Indication: Colonoscopy
     Route: 042
     Dates: start: 20241025, end: 20241025
  6. Bukwang Midazolam [Concomitant]
     Indication: Colonoscopy
     Route: 042
     Dates: start: 20250123, end: 20250123
  7. Alpit [Concomitant]
     Indication: Colonoscopy
     Route: 042
     Dates: start: 20250123, end: 20250123
  8. Alpit [Concomitant]
     Indication: Colonoscopy
     Dosage: FORM STRENGTH: 5 MILLIGRAM/MILLILITERS
     Route: 042
     Dates: start: 20250307, end: 20250307
  9. Alpit [Concomitant]
     Indication: Colonoscopy
     Route: 042
     Dates: start: 20241017, end: 20241017
  10. Alpit [Concomitant]
     Indication: Colonoscopy
     Dosage: FORM STRENGTH: 5 MILLIGRAM/MILLILITERS
     Route: 042
     Dates: start: 20250707, end: 20250707
  11. Alpit [Concomitant]
     Indication: Colonoscopy
     Route: 042
     Dates: start: 20241025, end: 20241025
  12. SODIUM CHLORIDE [Concomitant]
     Active Substance: SODIUM CHLORIDE
     Indication: Dehydration
     Dosage: UNIT DOSE : 1 BAG, 1000 MILLILITRE
     Route: 042
     Dates: start: 20241019, end: 20241023
  13. SODIUM CHLORIDE [Concomitant]
     Active Substance: SODIUM CHLORIDE
     Indication: Dehydration
     Dosage: FORM STRENGTH: 110 MILLILITRE
     Route: 042
     Dates: start: 20241018, end: 20241028
  14. Solondo [Concomitant]
     Indication: Colitis ulcerative
     Route: 048
     Dates: start: 20240911, end: 20240915
  15. Solondo [Concomitant]
     Indication: Colitis ulcerative
     Route: 048
     Dates: start: 20240906, end: 20240910
  16. Solondo [Concomitant]
     Indication: Colitis ulcerative
     Route: 048
     Dates: start: 20240927, end: 20241003
  17. Solondo [Concomitant]
     Indication: Colitis ulcerative
     Route: 048
     Dates: start: 20240920, end: 20240926
  18. AMINO ACIDS\DEXTROSE\ELECTROLYTES NOS\SOYBEAN OIL [Concomitant]
     Active Substance: AMINO ACIDS\DEXTROSE\ELECTROLYTES NOS\SOYBEAN OIL
     Indication: Nutritional supplementation
     Route: 042
     Dates: start: 20241018, end: 20241018
  19. NORVASC [Concomitant]
     Active Substance: AMLODIPINE BESYLATE
     Indication: Hypertension
     Dosage: FORM STRENGTH: 5 MILLIGRAM
     Route: 048
     Dates: start: 20240318
  20. PROPOFOL [Concomitant]
     Active Substance: PROPOFOL
     Indication: Colonoscopy
     Route: 042
     Dates: start: 20250123, end: 20250123
  21. PROPOFOL [Concomitant]
     Active Substance: PROPOFOL
     Indication: Colonoscopy
     Route: 042
     Dates: start: 20241017, end: 20241017
  22. PROPOFOL [Concomitant]
     Active Substance: PROPOFOL
     Indication: Colonoscopy
     Route: 042
     Dates: start: 20241025, end: 20241025
  23. FERINJECT [Concomitant]
     Active Substance: FERRIC CARBOXYMALTOSE
     Indication: Product used for unknown indication
     Route: 042
     Dates: start: 20241230, end: 20241230
  24. TEGOPRAZAN [Concomitant]
     Active Substance: TEGOPRAZAN
     Indication: Gastrooesophageal reflux disease
     Dosage: FORM STRENGTH: 50 MILLIGRAM
     Route: 048
     Dates: start: 20240813, end: 20241017
  25. TEGOPRAZAN [Concomitant]
     Active Substance: TEGOPRAZAN
     Indication: Gastrooesophageal reflux disease
     Dosage: FORM STRENGTH: 25 MILLIGRAM
     Route: 048
     Dates: start: 20241018

REACTIONS (4)
  - Cytomegalovirus infection [Recovered/Resolved with Sequelae]
  - Pyrexia [Recovered/Resolved]
  - Hyperlipidaemia [Not Recovered/Not Resolved]
  - Acne [Recovering/Resolving]

NARRATIVE: CASE EVENT DATE: 20240906
